FAERS Safety Report 24346378 (Version 1)
Quarter: 2024Q3

REPORT INFORMATION
  Report Type: Report from Study
  Country: IN (occurrence: IN)
  Receive Date: 20240921
  Receipt Date: 20240921
  Transmission Date: 20241016
  Serious: Yes (Death, Other)
  Sender: ABBVIE
  Company Number: IN-ABBVIE-5930978

PATIENT

DRUGS (1)
  1. SURVANTA [Suspect]
     Active Substance: BERACTANT
     Indication: Respiratory distress
     Route: 039

REACTIONS (3)
  - Intraventricular haemorrhage neonatal [Fatal]
  - Pulmonary haemorrhage [Fatal]
  - Pneumothorax [Fatal]
